FAERS Safety Report 4715121-3 (Version None)
Quarter: 2005Q3

REPORT INFORMATION
  Report Type: 
  Country: None (occurrence: None)
  Receive Date: 20050715
  Receipt Date: 20050523
  Transmission Date: 20060218
  Serious: Yes (Hospitalization, Other)
  Sender: FDA-Public Use
  Company Number: US-MERCK-0505USA02731

PATIENT
  Age: 61 Year
  Sex: Male

DRUGS (5)
  1. VIOXX [Suspect]
     Indication: ARTHRALGIA
     Route: 048
     Dates: start: 20000101, end: 20000301
  2. VIOXX [Suspect]
     Route: 048
     Dates: start: 20000414
  3. BIAXIN [Concomitant]
     Route: 065
  4. ZINC (UNSPECIFIED) [Concomitant]
     Route: 065
  5. ATROVENT [Concomitant]
     Route: 065

REACTIONS (30)
  - ABDOMINAL PAIN UPPER [None]
  - ACUTE PULMONARY OEDEMA [None]
  - ACUTE RESPIRATORY FAILURE [None]
  - AGGRESSION [None]
  - AGITATION [None]
  - ATRIAL FIBRILLATION [None]
  - BREATH SOUNDS ABNORMAL [None]
  - CARDIAC FAILURE CONGESTIVE [None]
  - CHEST PAIN [None]
  - CHEST WALL PAIN [None]
  - CORONARY ARTERY DISEASE [None]
  - DRUG INEFFECTIVE [None]
  - DYSPNOEA [None]
  - EPISTAXIS [None]
  - EXERCISE TOLERANCE DECREASED [None]
  - FATIGUE [None]
  - HYPERTENSION [None]
  - HYPERTENSIVE CARDIOMYOPATHY [None]
  - HYPERTENSIVE EMERGENCY [None]
  - HYPOKALAEMIA [None]
  - LOCALISED INFECTION [None]
  - MYOCARDIAL INFARCTION [None]
  - ONYCHOMYCOSIS [None]
  - PHLEBITIS [None]
  - POST HERPETIC NEURALGIA [None]
  - PYREXIA [None]
  - RENAL ARTERY STENOSIS [None]
  - RESPIRATORY TRACT CONGESTION [None]
  - THROMBOCYTOPENIA [None]
  - WHEEZING [None]
